FAERS Safety Report 14017326 (Version 1)
Quarter: 2017Q3

REPORT INFORMATION
  Report Type: Spontaneous
  Country: IN (occurrence: US)
  Receive Date: 20170927
  Receipt Date: 20170927
  Transmission Date: 20171128
  Serious: Yes (Other)
  Sender: FDA-Public Use
  Company Number: PHHY2017US138438

PATIENT
  Age: 30 Year
  Sex: Female

DRUGS (1)
  1. DOCETAXEL. [Suspect]
     Active Substance: DOCETAXEL
     Indication: METASTATIC NEOPLASM
     Dosage: 75 MG/M2, UNK
     Route: 042

REACTIONS (5)
  - Nail pigmentation [Unknown]
  - Rash [Unknown]
  - Skin discolouration [Unknown]
  - Skin hyperpigmentation [Unknown]
  - Alopecia [Unknown]
